FAERS Safety Report 7957117-4 (Version None)
Quarter: 2011Q4

REPORT INFORMATION
  Report Type: 
  Country: None (occurrence: None)
  Receive Date: 20111130
  Receipt Date: 20111118
  Transmission Date: 20120403
  Serious: Yes (Other)
  Sender: FDA-Public Use
  Company Number: IMP_05464_2011

PATIENT
  Age: 60 Year
  Sex: Male

DRUGS (9)
  1. ESCITALOPRAM (UNKNOWN UNTIL NOT CONTINUING) [Concomitant]
  2. MIRTAZAPINE (UNKNOWN UNTIL NOT CONTINUING) [Concomitant]
  3. ALPRAZOLAM (UNKNOWN UNTIL NOT CONTINUING) [Concomitant]
  4. TELMISARTAN (UNKNOWN) [Concomitant]
  5. BUPROPION HCL [Suspect]
     Indication: DEPRESSION
     Dosage: (DF)
     Dates: start: 20101201
  6. CLOPIDEGREL [Concomitant]
  7. ASPIRIN [Concomitant]
  8. SIMVASTATIN [Concomitant]
  9. CLONAZEPAM (UNKNOWN UNTIL NOT CONTINUING) [Concomitant]

REACTIONS (7)
  - FATIGUE [None]
  - ASTHENIA [None]
  - SECONDARY ADRENOCORTICAL INSUFFICIENCY [None]
  - ANXIETY [None]
  - INSOMNIA [None]
  - CARCINOEMBRYONIC ANTIGEN INCREASED [None]
  - HYPONATRAEMIA [None]
